FAERS Safety Report 7439263-7 (Version None)
Quarter: 2011Q2

REPORT INFORMATION
  Report Type: 
  Country: None (occurrence: None)
  Receive Date: 20110427
  Receipt Date: 20080312
  Transmission Date: 20111010
  Serious: Yes (Hospitalization, Other)
  Sender: FDA-Public Use
  Company Number: US-BAYER-200817217NA

PATIENT
  Age: 46 Year
  Sex: Male
  Weight: 83.9 kg

DRUGS (8)
  1. HEPARIN [Concomitant]
     Dosage: UNK
     Route: 042
     Dates: start: 20050908
  2. TRASYLOL [Suspect]
     Indication: CORONARY ARTERY BYPASS
     Dosage: 1 ML, UNK, INITIAL TEST DOSE
     Route: 042
     Dates: start: 20050908, end: 20050908
  3. TRASYLOL [Suspect]
     Dosage: INFUSION AT 50 CC/HOUR
     Route: 042
     Dates: start: 20050908, end: 20050908
  4. NITROGLYCERIN [Concomitant]
     Dosage: UNK
     Dates: start: 20050906
  5. TRASYLOL [Suspect]
     Dosage: LOADING DOSE OF  200 CC
     Route: 042
     Dates: start: 20050908, end: 20050908
  6. ATACAND [CANDESARTAN CILEXETIL,HYDROCHLOROTHIAZIDE] [Concomitant]
     Dosage: UNK
     Dates: start: 20050906
  7. LOPRESSOR [Concomitant]
     Dosage: UNK
     Dates: start: 20050906
  8. NOVOLOG [Concomitant]

REACTIONS (9)
  - ANHEDONIA [None]
  - PAIN [None]
  - INJURY [None]
  - ANXIETY [None]
  - UNEVALUABLE EVENT [None]
  - FEAR [None]
  - DEPRESSION [None]
  - EMOTIONAL DISTRESS [None]
  - CARDIAC FAILURE [None]
